FAERS Safety Report 15044209 (Version 3)
Quarter: 2024Q3

REPORT INFORMATION
  Report Type: Spontaneous
  Country: JP (occurrence: JP)
  Receive Date: 20180621
  Receipt Date: 20240828
  Transmission Date: 20241016
  Serious: Yes (Hospitalization, Disabling, Other)
  Sender: BRISTOL MYERS SQUIBB
  Company Number: JP-BRISTOL-MYERS SQUIBB COMPANY-BMS-2017-111552

PATIENT
  Age: 65 Year
  Sex: Male
  Weight: 77 kg

DRUGS (2)
  1. IPILIMUMAB [Suspect]
     Active Substance: IPILIMUMAB
     Indication: Malignant melanoma
     Dosage: 717.5 MG, Q3WK
     Route: 041
     Dates: start: 20171114, end: 20171227
  2. NIVOLUMAB [Suspect]
     Active Substance: NIVOLUMAB
     Indication: Malignant melanoma
     Dosage: 3 MG/KG, Q2WK
     Route: 041
     Dates: start: 20170711, end: 201711

REACTIONS (10)
  - Adrenal insufficiency [Not Recovered/Not Resolved]
  - Hypogonadism [Not Recovered/Not Resolved]
  - Uveitis [Not Recovered/Not Resolved]
  - Malaise [Unknown]
  - Hypoglycaemia [Unknown]
  - Decreased appetite [Unknown]
  - Rash [Recovering/Resolving]
  - Type 1 diabetes mellitus [Not Recovered/Not Resolved]
  - Secondary hypogonadism [Not Recovered/Not Resolved]
  - Malignant neoplasm progression [Unknown]

NARRATIVE: CASE EVENT DATE: 20170714
